FAERS Safety Report 9783191 (Version 2)
Quarter: 2014Q1

REPORT INFORMATION
  Report Type: Spontaneous
  Country: US (occurrence: US)
  Receive Date: 20131226
  Receipt Date: 20140205
  Transmission Date: 20141002
  Serious: Yes (Other)
  Sender: FDA-Public Use
  Company Number: US-SA-2013SA134261

PATIENT
  Age: 67 Year
  Sex: Male
  Weight: 82 kg

DRUGS (3)
  1. ALLEGRA [Suspect]
     Indication: EAR DISCOMFORT
     Route: 048
     Dates: start: 20131217, end: 20131217
  2. ALLEGRA [Suspect]
     Indication: EAR DISCOMFORT
     Route: 048
     Dates: start: 20131217, end: 20131217
  3. METOPROLOL [Concomitant]
     Indication: BLOOD PRESSURE
     Dates: start: 2011, end: 201401

REACTIONS (5)
  - Loss of consciousness [Recovered/Resolved]
  - Heart rate decreased [Recovered/Resolved]
  - Abdominal pain upper [Recovered/Resolved]
  - Feeling abnormal [Unknown]
  - Visual acuity reduced [Unknown]
